FAERS Safety Report 19072001 (Version 1)
Quarter: 2021Q1

REPORT INFORMATION
  Report Type: Spontaneous
  Country: US (occurrence: US)
  Receive Date: 20210330
  Receipt Date: 20210330
  Transmission Date: 20210420
  Serious: No
  Sender: FDA-Public Use
  Company Number: US-APOTEX-2021AP005882

PATIENT
  Sex: Female

DRUGS (3)
  1. FENTANYL TRANSDERMAL SYSTEM [Suspect]
     Active Substance: FENTANYL
     Dosage: UNK, ONCE EVERY72 HOURS
     Route: 062
  2. FENTANYL TRANSDERMAL SYSTEM [Suspect]
     Active Substance: FENTANYL
     Indication: ANALGESIC THERAPY
     Dosage: UNK, ONCE EVERY72 HOURS
     Route: 062
  3. FENTANYL TRANSDERMAL SYSTEM [Suspect]
     Active Substance: FENTANYL
     Dosage: UNK, ONCE EVERY 72 HURS
     Route: 062

REACTIONS (10)
  - Withdrawal syndrome [Unknown]
  - Diarrhoea [Unknown]
  - Product substitution issue [Unknown]
  - Product blister packaging issue [Unknown]
  - Product adhesion issue [Unknown]
  - Incorrect dose administered by product [Unknown]
  - Flushing [Unknown]
  - Drug ineffective [Unknown]
  - Feeling hot [Unknown]
  - Hyperhidrosis [Unknown]
